FAERS Safety Report 6389877-0 (Version None)
Quarter: 2009Q4

REPORT INFORMATION
  Report Type: 
  Country: None (occurrence: None)
  Receive Date: 20091006
  Receipt Date: 20090116
  Transmission Date: 20100525
  Serious: No
  Sender: FDA-Public Use
  Company Number: US-BRISTOL-MYERS SQUIBB COMPANY-14476279

PATIENT
  Age: 43 Year
  Sex: Female

DRUGS (1)
  1. AVAPRO [Suspect]
     Indication: HYPERTENSION
     Dosage: NEW BATCH STARTED ON 11-12JAN2009-ONG, SWITCHED BACK TO TODAY'S DOSE ON 16JAN2009.
     Route: 048
     Dates: start: 20081201

REACTIONS (3)
  - DIZZINESS [None]
  - DYSPNOEA [None]
  - EAR DISCOMFORT [None]
